FAERS Safety Report 7595956-2 (Version None)
Quarter: 2011Q3

REPORT INFORMATION
  Report Type: 
  Country: None (occurrence: None)
  Receive Date: 20110707
  Receipt Date: 20110622
  Transmission Date: 20111222
  Serious: Yes (Hospitalization)
  Sender: FDA-Public Use
  Company Number: PHHY2011BR56161

PATIENT
  Sex: Male

DRUGS (2)
  1. GALVUS MET [Suspect]
     Dosage: 850 MG METF AND 50 MG VILD
  2. DIOVAN [Suspect]

REACTIONS (1)
  - PROSTHESIS USER [None]
